FAERS Safety Report 17031395 (Version 4)
Quarter: 2019Q4

REPORT INFORMATION
  Report Type: Spontaneous
  Country: US (occurrence: US)
  Receive Date: 20191114
  Receipt Date: 20191205
  Transmission Date: 20200122
  Serious: No
  Sender: FDA-Public Use
  Company Number: US-PFIZER INC-2019491007

PATIENT
  Age: 68 Year
  Sex: Male

DRUGS (1)
  1. XELJANZ [Suspect]
     Active Substance: TOFACITINIB CITRATE
     Dosage: 5 MG, 2X/DAY
     Route: 048
     Dates: start: 20191028

REACTIONS (4)
  - Rash [Unknown]
  - Skin disorder [Unknown]
  - Lung disorder [Unknown]
  - Pain [Unknown]

NARRATIVE: CASE EVENT DATE: 20191111
